FAERS Safety Report 14588055 (Version 1)
Quarter: 2018Q1

REPORT INFORMATION
  Report Type: Spontaneous
  Country: PL (occurrence: PL)
  Receive Date: 20180301
  Receipt Date: 20180301
  Transmission Date: 20180509
  Serious: Yes (Other)
  Sender: FDA-Public Use
  Company Number: PL-JNJFOC-20180236799

PATIENT
  Age: 70 Year
  Sex: Female

DRUGS (15)
  1. RASAGILINE. [Suspect]
     Active Substance: RASAGILINE
     Indication: PARKINSON^S DISEASE
     Route: 065
  2. BIPERIDEN [Interacting]
     Active Substance: BIPERIDEN
     Indication: PARKINSON^S DISEASE
     Route: 065
  3. AMITRIPTYLIN [Interacting]
     Active Substance: AMITRIPTYLINE
     Indication: DEPRESSION
     Dosage: FOR DEPRESSION
     Route: 065
  4. AMITRIPTYLIN [Interacting]
     Active Substance: AMITRIPTYLINE
     Indication: SLEEP DISORDER
     Dosage: FOR SLEEP DISORDER
     Route: 065
  5. LEVODOPA/CARBIDOPA [Concomitant]
     Active Substance: CARBIDOPA\LEVODOPA
     Indication: PARKINSON^S DISEASE
     Dosage: 100/25 MG; AT 7.00, 11.00, 15.00 AND 19.00
     Route: 065
  6. OXYBUTYNIN HYDROCHLORIDE [Suspect]
     Active Substance: OXYBUTYNIN CHLORIDE
     Indication: URINARY INCONTINENCE
     Route: 065
  7. AMITRIPTYLIN [Interacting]
     Active Substance: AMITRIPTYLINE
     Indication: DEPRESSION
     Dosage: FOR SLEEP DISORDER
     Route: 065
  8. CLOZAPINE. [Concomitant]
     Active Substance: CLOZAPINE
     Route: 065
  9. AMANTADINE. [Suspect]
     Active Substance: AMANTADINE HYDROCHLORIDE
     Indication: PARKINSON^S DISEASE
     Route: 065
  10. ROPINIROLE. [Interacting]
     Active Substance: ROPINIROLE
     Indication: PARKINSON^S DISEASE
     Dosage: DECREASED DOSE TILL 2MG/DAY
     Route: 048
  11. AMITRIPTYLIN [Interacting]
     Active Substance: AMITRIPTYLINE
     Indication: SLEEP DISORDER
     Dosage: FOR DEPRESSION
     Route: 065
  12. ROPINIROLE. [Interacting]
     Active Substance: ROPINIROLE
     Indication: PARKINSON^S DISEASE
     Dosage: IN MORNING
     Route: 048
  13. HYDROXYZINE [Concomitant]
     Active Substance: HYDROXYZINE HYDROCHLORIDE
     Indication: ANXIETY DISORDER
     Dosage: 25 MG; AD HOC
     Route: 065
  14. ROPINIROLE. [Interacting]
     Active Substance: ROPINIROLE
     Indication: PARKINSON^S DISEASE
     Route: 048
  15. LEVODOPA/CARBIDOPA [Concomitant]
     Active Substance: CARBIDOPA\LEVODOPA
     Indication: PARKINSON^S DISEASE
     Dosage: 200/50 MG; AT 22.00
     Route: 065

REACTIONS (3)
  - Psychotic symptom [Unknown]
  - Hallucination, visual [Unknown]
  - Drug interaction [Unknown]
